FAERS Safety Report 16112471 (Version 6)
Quarter: 2020Q3

REPORT INFORMATION
  Report Type: Spontaneous
  Country: US (occurrence: US)
  Receive Date: 20190325
  Receipt Date: 20200702
  Transmission Date: 20201102
  Serious: Yes (Other)
  Sender: FDA-Public Use
  Company Number: US-PFIZER INC-2017401606

PATIENT
  Age: 41 Year
  Sex: Female
  Weight: 158.76 kg

DRUGS (3)
  1. SOMAVERT [Suspect]
     Active Substance: PEGVISOMANT
     Indication: PITUITARY TUMOUR
     Dosage: 40 MG, 1X/DAY (2?20MG VIALS FOR A TOTAL 40MG INJECTION, ONCE A DAY)
     Dates: end: 2020
  2. SOMAVERT [Suspect]
     Active Substance: PEGVISOMANT
     Indication: ACROMEGALY
     Dosage: 40 MG, DAILY [20MG VIAL 2 DAILY (40MG)]
     Route: 058
     Dates: start: 201508
  3. PASIREOTIDE. [Concomitant]
     Active Substance: PASIREOTIDE
     Dosage: 40 MG, MONTHLY (ONCE A MONTH INJECTION)

REACTIONS (7)
  - Diabetes mellitus [Unknown]
  - Swelling [Unknown]
  - Prescribed overdose [Unknown]
  - Insulin-like growth factor increased [Unknown]
  - Intentional product use issue [Unknown]
  - Drug ineffective [Unknown]
  - Headache [Unknown]

NARRATIVE: CASE EVENT DATE: 201508
